FAERS Safety Report 25357118 (Version 1)
Quarter: 2025Q2

REPORT INFORMATION
  Report Type: Spontaneous
  Country: RU (occurrence: RU)
  Receive Date: 20250526
  Receipt Date: 20250526
  Transmission Date: 20250717
  Serious: Yes (Other)
  Sender: ROCHE
  Company Number: RU-ROCHE-10000276847

PATIENT
  Age: 37 Year
  Sex: Female

DRUGS (4)
  1. VEMURAFENIB [Suspect]
     Active Substance: VEMURAFENIB
     Indication: Malignant melanoma
     Dosage: 1,920 MG DAILY, PER OS, DAYS 1-21
     Route: 048
     Dates: start: 20240115
  2. VEMURAFENIB [Suspect]
     Active Substance: VEMURAFENIB
     Dosage: LEVEL 1 REDUCTION OF THE VEMURAFENIB DOSE (720 MG TWICE DAILY)
     Route: 048
     Dates: start: 20240205
  3. COTELLIC [Suspect]
     Active Substance: COBIMETINIB FUMARATE
     Indication: Malignant melanoma
     Dosage: 60 MG DAILY, PER OS, DAYS 1-21
     Route: 048
     Dates: start: 20240115
  4. ATEZOLIZUMAB [Suspect]
     Active Substance: ATEZOLIZUMAB
     Indication: Malignant melanoma
     Route: 042
     Dates: start: 20240212

REACTIONS (5)
  - Hyperthermia [Recovered/Resolved]
  - Anaemia [Recovered/Resolved]
  - Skin toxicity [Recovered/Resolved]
  - Pneumonia [Unknown]
  - Lymphadenopathy [Unknown]

NARRATIVE: CASE EVENT DATE: 20240416
